FAERS Safety Report 9320250 (Version 1)
Quarter: 2013Q2

REPORT INFORMATION
  Report Type: Spontaneous
  Country: US (occurrence: US)
  Receive Date: 20130530
  Receipt Date: 20130530
  Transmission Date: 20140414
  Serious: No
  Sender: FDA-Public Use
  Company Number: US-009507513-1305USA005388

PATIENT
  Age: 76 Year
  Sex: Female

DRUGS (3)
  1. MIRALAX [Suspect]
     Indication: CONSTIPATION
     Dosage: UNK, QD
     Route: 048
     Dates: start: 2012
  2. SENOKOT (SENNA) [Concomitant]
     Indication: CONSTIPATION
     Dosage: 1 UNK, ONCE
     Route: 048
     Dates: start: 20130420, end: 20130420
  3. SENOKOT (SENNA) [Concomitant]
     Dosage: 1 DF, ONCE
     Route: 048
     Dates: start: 20130423, end: 20130423

REACTIONS (2)
  - Constipation [Not Recovered/Not Resolved]
  - Incorrect drug administration duration [Unknown]
